FAERS Safety Report 5697401-0 (Version None)
Quarter: 2008Q2

REPORT INFORMATION
  Report Type: 
  Country: None (occurrence: None)
  Receive Date: 20080407
  Receipt Date: 20080326
  Transmission Date: 20081010
  Serious: Yes (Hospitalization, Other)
  Sender: FDA-Public Use
  Company Number: PHEH2008US03149

PATIENT
  Age: 65 Year
  Sex: Male

DRUGS (6)
  1. GLEEVEC [Suspect]
     Indication: CHRONIC MYELOID LEUKAEMIA
     Dosage: 800 MG, QD
     Route: 048
     Dates: start: 20020101, end: 20060101
  2. GLEEVEC [Suspect]
     Dosage: 600 MG, QD
     Route: 048
     Dates: start: 20060101, end: 20080101
  3. GLEEVEC [Suspect]
     Dosage: 400 MG, QD
     Route: 048
     Dates: start: 20080201
  4. LIPITOR [Concomitant]
  5. ATENOLOL [Concomitant]
     Indication: HYPERTENSION
  6. ASPIRIN [Concomitant]

REACTIONS (10)
  - BONE MARROW FAILURE [None]
  - HAEMATOCRIT DECREASED [None]
  - LOCALISED INFECTION [None]
  - OSTEOMYELITIS [None]
  - PLEURAL EFFUSION [None]
  - RED BLOOD CELL COUNT DECREASED [None]
  - STENT PLACEMENT [None]
  - TOE AMPUTATION [None]
  - VASCULAR GRAFT [None]
  - VASCULAR OCCLUSION [None]
